FAERS Safety Report 17026611 (Version 2)
Quarter: 2019Q4

REPORT INFORMATION
  Report Type: Spontaneous
  Country: JP (occurrence: JP)
  Receive Date: 20191113
  Receipt Date: 20191122
  Transmission Date: 20200122
  Serious: No
  Sender: FDA-Public Use
  Company Number: JP-OTSUKA-2019_034984

PATIENT
  Age: 89 Year
  Sex: Male

DRUGS (1)
  1. SAMSCA [Suspect]
     Active Substance: TOLVAPTAN
     Indication: CARDIAC FAILURE
     Dosage: 7.5MG, FREQUENCY UNKNOWN
     Route: 048

REACTIONS (1)
  - Hypernatraemia [Recovered/Resolved]
